FAERS Safety Report 6535693-6 (Version None)
Quarter: 2010Q1

REPORT INFORMATION
  Report Type: 
  Country: None (occurrence: None)
  Receive Date: 20100113
  Receipt Date: 20100104
  Transmission Date: 20100710
  Serious: Yes (Other)
  Sender: FDA-Public Use
  Company Number: GB-ASTRAZENECA-2010SE00145

PATIENT
  Sex: Male

DRUGS (5)
  1. PROPOFOL [Suspect]
     Indication: GENERAL ANAESTHESIA
  2. FENTANYL-100 [Suspect]
     Indication: GENERAL ANAESTHESIA
  3. LEVOBUPIVACAINE [Suspect]
     Route: 053
  4. OXYGEN [Suspect]
  5. SEVOFLURANE [Suspect]
     Route: 055

REACTIONS (4)
  - DYSARTHRIA [None]
  - HEMIPLEGIA [None]
  - MIGRAINE WITH AURA [None]
  - SENSORY LOSS [None]
